FAERS Safety Report 26028112 (Version 1)
Quarter: 2025Q4

REPORT INFORMATION
  Report Type: Spontaneous
  Country: LB (occurrence: LB)
  Receive Date: 20251111
  Receipt Date: 20251111
  Transmission Date: 20260118
  Serious: Yes (Hospitalization, Other)
  Sender: NIVAGEN PHARMACEUTICALS INC
  Company Number: LB-NPI-000147

PATIENT
  Age: 40 Year
  Sex: Female

DRUGS (2)
  1. ATROPINE [Suspect]
     Active Substance: ATROPINE
     Indication: Neuromuscular blockade reversal
     Dosage: 0.02 MILLIGRAM PER KILOGRAM
     Route: 042
  2. NEOSTIGMINE METHYLSULFATE [Suspect]
     Active Substance: NEOSTIGMINE METHYLSULFATE
     Indication: Neuromuscular blockade reversal
     Dosage: 0.04 MILLIGRAM PER KILOGRAM
     Route: 042

REACTIONS (2)
  - Stress cardiomyopathy [Recovered/Resolved]
  - Ventricular fibrillation [Recovered/Resolved]
